FAERS Safety Report 17728373 (Version 3)
Quarter: 2020Q2

REPORT INFORMATION
  Report Type: Report from Study
  Country: ES (occurrence: ES)
  Receive Date: 20200430
  Receipt Date: 20200507
  Transmission Date: 20200714
  Serious: Yes (Other)
  Sender: FDA-Public Use
  Company Number: ES-PFIZER INC-2020171595

PATIENT
  Age: 16 Year
  Sex: Male

DRUGS (2)
  1. TESTOSTERONE. [Suspect]
     Active Substance: TESTOSTERONE
     Indication: HORMONE REPLACEMENT THERAPY
     Dosage: UNK
     Route: 065
  2. CABERGOLINE. [Suspect]
     Active Substance: CABERGOLINE
     Indication: PROLACTIN-PRODUCING PITUITARY TUMOUR
     Dosage: 3 MG, WEEKLY
     Route: 065

REACTIONS (2)
  - Drug resistance [Unknown]
  - Drug ineffective [Unknown]
